FAERS Safety Report 16659234 (Version 3)
Quarter: 2022Q2

REPORT INFORMATION
  Report Type: Spontaneous
  Country: JP (occurrence: JP)
  Receive Date: 20190802
  Receipt Date: 20220502
  Transmission Date: 20220720
  Serious: Yes (Death, Hospitalization)
  Sender: FDA-Public Use
  Company Number: JP-CHUGAI-A2019031517ROCHE

PATIENT
  Age: 39 Year
  Sex: Male

DRUGS (17)
  1. TECENTRIQ [Suspect]
     Active Substance: ATEZOLIZUMAB
     Indication: Non-small cell lung cancer
     Dosage: 1200 MILLIGRAM, SINGLE, AS REQUIRED
     Route: 041
     Dates: start: 20190711, end: 20190711
  2. AVASTIN [Suspect]
     Active Substance: BEVACIZUMAB
     Indication: Non-small cell lung cancer
     Dosage: 15 MILLIGRAM/KILOGRAM, SINGLE, AS REQUIRED
     Route: 041
     Dates: start: 20190711, end: 20190711
  3. PACLITAXEL [Concomitant]
     Active Substance: PACLITAXEL
     Indication: Non-small cell lung cancer
     Dosage: 200 MILLIGRAM, SINGLE
     Route: 041
     Dates: start: 20190711, end: 20190711
  4. CARBOPLATIN [Concomitant]
     Active Substance: CARBOPLATIN
     Indication: Non-small cell lung cancer
     Dosage: 6 MG, SINGLE AS REQUIRED
     Route: 041
     Dates: start: 20190711, end: 20190711
  5. VOLTAREN [Concomitant]
     Active Substance: DICLOFENAC SODIUM
     Dosage: DOSAGE IS UNCERTAIN.
     Route: 048
  6. RABEPRAZOLE SODIUM [Concomitant]
     Active Substance: RABEPRAZOLE SODIUM
     Dosage: DOSAGE IS UNCERTAIN.
     Route: 048
  7. CALCIUM CARBONATE\CHOLECALCIFEROL\MAGNESIUM CARBONATE [Concomitant]
     Active Substance: CALCIUM CARBONATE\CHOLECALCIFEROL\MAGNESIUM CARBONATE
     Dosage: DOSAGE IS UNCERTAIN
     Route: 048
  8. LYRICA [Concomitant]
     Active Substance: PREGABALIN
     Dosage: DOSAGE IS UNCERTAIN.
     Route: 048
  9. URSODIOL [Concomitant]
     Active Substance: URSODIOL
     Dosage: DOSAGE IS UNCERTAIN.
     Route: 048
  10. GLYCYRON [Concomitant]
     Dosage: DOSAGE IS UNCERTAIN.
     Route: 048
  11. MAGNESIUM OXIDE [Concomitant]
     Active Substance: MAGNESIUM OXIDE
     Dosage: UNK
     Route: 048
  12. SENNOSIDES [Concomitant]
     Active Substance: SENNOSIDES
     Dosage: DOSAGE IS UNCERTAIN.
     Route: 048
  13. BROTIZOLAM [Concomitant]
     Active Substance: BROTIZOLAM
     Dosage: DOSAGE IS UNCERTAIN
     Route: 048
  14. PRIMPERAN [Concomitant]
     Active Substance: METOCLOPRAMIDE HYDROCHLORIDE
     Dosage: DOSAGE IS UNCERTAIN.
     Route: 048
  15. DIPHENHYDRAMINE [Concomitant]
     Active Substance: DIPHENHYDRAMINE
     Dosage: OINTMENT, CREAM, DOSAGE IS UNCERTAIN
     Route: 003
  16. OXYCODONE HYDROCHLORIDE [Concomitant]
     Active Substance: OXYCODONE HYDROCHLORIDE
     Dosage: DOSAGE IS UNCERTAIN.
     Route: 048
  17. OXYCODONE HYDROCHLORIDE [Concomitant]
     Active Substance: OXYCODONE HYDROCHLORIDE
     Dosage: DOSAGE IS UNCERTAIN.
     Route: 048

REACTIONS (2)
  - Death [Fatal]
  - Stevens-Johnson syndrome [Recovering/Resolving]

NARRATIVE: CASE EVENT DATE: 20190715
